FAERS Safety Report 22522918 (Version 1)
Quarter: 2023Q2

REPORT INFORMATION
  Report Type: Spontaneous
  Country: JP (occurrence: JP)
  Receive Date: 20230606
  Receipt Date: 20230606
  Transmission Date: 20230722
  Serious: Yes (Death, Other)
  Sender: FDA-Public Use
  Company Number: JP-ABBVIE-4226764

PATIENT
  Age: 69 Year
  Sex: Male
  Weight: 49 kg

DRUGS (8)
  1. HUMIRA [Suspect]
     Active Substance: ADALIMUMAB
     Indication: Crohn^s disease
     Dosage: FORM STRENGTH: 40 MILLIGRAM
     Route: 058
     Dates: start: 20221122, end: 20221210
  2. BUDESONIDE [Concomitant]
     Active Substance: BUDESONIDE
     Indication: Crohn^s disease
     Dosage: TIME INTERVAL: 0.33333333 DAYS: 9 MILLIGRAM
     Route: 048
     Dates: start: 20221031, end: 20221210
  3. LANSOPRAZOLE [Concomitant]
     Active Substance: LANSOPRAZOLE
     Indication: Product used for unknown indication
     Dosage: 10 MILLIGRAM
     Route: 048
     Dates: end: 20221210
  4. AMINO ACIDS\CARBOHYDRATES\MINERALS\SOYBEAN OIL\VITAMINS [Concomitant]
     Active Substance: AMINO ACIDS\CARBOHYDRATES\MINERALS\SOYBEAN OIL\VITAMINS
     Indication: Crohn^s disease
     Dosage: 80 GRAM
     Route: 048
     Dates: end: 20221210
  5. DIETARY SUPPLEMENT\PROBIOTICS [Concomitant]
     Active Substance: DIETARY SUPPLEMENT\PROBIOTICS NOS
     Indication: Crohn^s disease
     Dosage: 3 TABLET, LACTOMIN, AMYLOLYTIC BACILLUS AND CLOSTRIDIUM BUTYRICUM
     Route: 048
     Dates: end: 20221210
  6. MESALAMINE [Concomitant]
     Active Substance: MESALAMINE
     Indication: Crohn^s disease
     Dosage: TIME INTERVAL: 0.16666667 DAYS: 3000 MILLIGRAM
     Route: 048
     Dates: start: 20190321, end: 20221210
  7. MESALAMINE [Concomitant]
     Active Substance: MESALAMINE
     Indication: Crohn^s disease
     Dosage: 2000 MILLIGRAM
     Route: 048
     Dates: end: 20190321
  8. AZATHIOPRINE [Concomitant]
     Active Substance: AZATHIOPRINE
     Indication: Crohn^s disease
     Dosage: 50 MILLIGRAM
     Route: 048
     Dates: start: 20221007, end: 20221210

REACTIONS (9)
  - Peritonitis [Fatal]
  - Large intestinal haemorrhage [Unknown]
  - Crohn^s disease [Unknown]
  - Hypophagia [Unknown]
  - Gastrointestinal perforation [Fatal]
  - Malnutrition [Unknown]
  - Large intestinal ulcer [Unknown]
  - Tachypnoea [Unknown]
  - Shock haemorrhagic [Unknown]

NARRATIVE: CASE EVENT DATE: 20221129
